FAERS Safety Report 5068768-1 (Version None)
Quarter: 2006Q3

REPORT INFORMATION
  Report Type: 
  Country: None (occurrence: None)
  Receive Date: 20060802
  Receipt Date: 20060323
  Transmission Date: 20061208
  Serious: No
  Sender: FDA-Public Use
  Company Number: US-BRISTOL-MYERS SQUIBB COMPANY-13325048

PATIENT
  Age: 84 Year
  Sex: Male
  Weight: 89 kg

DRUGS (6)
  1. COUMADIN [Suspect]
     Indication: THROMBOSIS
     Dosage: DOSE ADJUSTED ACCORDING TO INR RESULT
     Dates: start: 20030501
  2. COUMADIN [Suspect]
     Indication: MYOCARDIAL INFARCTION
     Dosage: DOSE ADJUSTED ACCORDING TO INR RESULT
     Dates: start: 20030501
  3. TOPROL-XL [Concomitant]
  4. HYDROCODONE [Concomitant]
  5. SYNTHROID [Concomitant]
  6. ACETAMINOPHEN [Concomitant]

REACTIONS (1)
  - INTERNATIONAL NORMALISED RATIO FLUCTUATION [None]
